FAERS Safety Report 8276269-2 (Version None)
Quarter: 2012Q2

REPORT INFORMATION
  Report Type: 
  Country: None (occurrence: None)
  Receive Date: 20120412
  Receipt Date: 20120403
  Transmission Date: 20120825
  Serious: Yes (Hospitalization, Disabling)
  Sender: FDA-Public Use
  Company Number: PHHY2012FR029639

PATIENT
  Age: 76 Year
  Sex: Female

DRUGS (9)
  1. PANTOPRAZOLE SODIUM [Concomitant]
     Dosage: 20 MG, UNK
  2. ACETAMINOPHEN [Concomitant]
     Dosage: 500 MG, UNK
  3. CHONDROITIN SULFATE SODIUM [Concomitant]
     Dosage: 400 MG, UNK
  4. ALENDRONIC ACID [Concomitant]
     Dosage: 70 MG, UNK
  5. VOLTAREN [Suspect]
     Dosage: 75 MG, UNK
     Route: 048
     Dates: start: 20120210, end: 20120228
  6. ASPIRIN [Interacting]
     Dosage: 75 MG, UNK
  7. XARELTO [Interacting]
     Dosage: 10 MG DAILY
     Dates: start: 20120118, end: 20120228
  8. ASPIRIN [Interacting]
     Dosage: 75 MG, UNK
     Dates: start: 20120121, end: 20120225
  9. SOTALOL HCL [Concomitant]
     Dosage: 160 MG, UNK

REACTIONS (9)
  - PHOTOPHOBIA [None]
  - DRUG INTERACTION [None]
  - PSYCHOMOTOR RETARDATION [None]
  - MALAISE [None]
  - BLOOD FIBRINOGEN INCREASED [None]
  - ACTIVATED PARTIAL THROMBOPLASTIN TIME PROLONGED [None]
  - INTRACRANIAL HAEMATOMA [None]
  - HEADACHE [None]
  - HEMIPARESIS [None]
